FAERS Safety Report 22146942 (Version 3)
Quarter: 2023Q2

REPORT INFORMATION
  Report Type: Spontaneous
  Country: JP (occurrence: JP)
  Receive Date: 20230328
  Receipt Date: 20230602
  Transmission Date: 20230722
  Serious: Yes (Other)
  Sender: FDA-Public Use
  Company Number: JP-ELI_LILLY_AND_COMPANY-JP202301013952

PATIENT
  Age: 65 Year
  Sex: Female

DRUGS (3)
  1. CYRAMZA [Suspect]
     Active Substance: RAMUCIRUMAB
     Indication: Lung neoplasm malignant
     Dosage: 10 MG/KG, CYCLICAL
     Route: 041
     Dates: start: 202301
  2. TARCEVA [Suspect]
     Active Substance: ERLOTINIB HYDROCHLORIDE
     Indication: Lung neoplasm malignant
     Dosage: UNK MG
     Route: 065
     Dates: start: 202301
  3. TARCEVA [Suspect]
     Active Substance: ERLOTINIB HYDROCHLORIDE
     Dosage: 100 MG
     Route: 065
     Dates: start: 202303

REACTIONS (2)
  - Hypertension [Recovering/Resolving]
  - Drug-induced liver injury [Recovering/Resolving]

NARRATIVE: CASE EVENT DATE: 20230101
